FAERS Safety Report 5961851-5 (Version None)
Quarter: 2008Q4

REPORT INFORMATION
  Report Type: 
  Country: None (occurrence: None)
  Receive Date: 20081121
  Receipt Date: 20080315
  Transmission Date: 20090506
  Serious: No
  Sender: FDA-Public Use
  Company Number: US-BRISTOL-MYERS SQUIBB COMPANY-14121289

PATIENT

DRUGS (1)
  1. COAPROVEL TABS 300MG/12.5MG [Suspect]

REACTIONS (1)
  - DRUG INEFFECTIVE [None]
